FAERS Safety Report 5345266-9 (Version None)
Quarter: 2007Q2

REPORT INFORMATION
  Report Type: 
  Country: None (occurrence: None)
  Receive Date: 20070601
  Receipt Date: 20070518
  Transmission Date: 20071010
  Serious: Yes (Hospitalization)
  Sender: FDA-Public Use
  Company Number: TRP_00947_2007

PATIENT
  Sex: Male
  Weight: 103.5 kg

DRUGS (6)
  1. RIBASPHERE/RIBAVIRIN/THREE RIVERS PHARMA (THREE RIVERS PHARMACEUTICALS [Suspect]
     Indication: HEPATITIS C
     Dosage: 1200 MG QD ORAL
     Route: 048
     Dates: start: 20050921, end: 20051104
  2. RIBASPHERE/RIBAVIRIN/THREE RIVERS PHARMA (THREE RIVERS PHARMACEUTICALS [Suspect]
     Indication: HEPATITIS C
     Dosage: 1200 MG QD ORAL
     Route: 048
     Dates: start: 20051109, end: 20060821
  3. INFERGEN [Suspect]
     Indication: HEPATITIS C
     Dosage: 15 ?G QD SUBCUTANEOUS
     Route: 058
     Dates: start: 20050921, end: 20051104
  4. INFERGEN [Suspect]
     Indication: HEPATITIS C
     Dosage: 15 ?G QD SUBCUTANEOUS
     Route: 058
     Dates: start: 20051109, end: 20060303
  5. INFERGEN [Suspect]
     Indication: HEPATITIS C
     Dosage: 0.3 ML QD  SUBCUTANEOUS
     Route: 058
     Dates: start: 20060304, end: 20060418
  6. INFERGEN [Suspect]
     Indication: HEPATITIS C
     Dosage: 15 ?G QD SUBCUTANEOUS
     Route: 058
     Dates: start: 20060418, end: 20060821

REACTIONS (7)
  - COLITIS [None]
  - DIZZINESS [None]
  - ENTEROCOLITIS INFECTIOUS [None]
  - HAEMOGLOBIN DECREASED [None]
  - HUNGER [None]
  - HYPERHIDROSIS [None]
  - PRESYNCOPE [None]
